FAERS Safety Report 22391006 (Version 2)
Quarter: 2023Q2

REPORT INFORMATION
  Report Type: Spontaneous
  Country: US (occurrence: US)
  Receive Date: 20230601
  Receipt Date: 20230604
  Transmission Date: 20230722
  Serious: Yes (Hospitalization, Other)
  Sender: FDA-Public Use
  Company Number: US-ABBVIE-5185965

PATIENT
  Sex: Female
  Weight: 81.192 kg

DRUGS (3)
  1. PANCRELIPASE [Suspect]
     Active Substance: PANCRELIPASE
     Indication: Pancreatic failure
     Route: 048
     Dates: start: 2021, end: 2021
  2. PANCRELIPASE [Suspect]
     Active Substance: PANCRELIPASE
     Indication: Pancreatic failure
     Route: 048
     Dates: start: 2015
  3. PANCRELIPASE [Suspect]
     Active Substance: PANCRELIPASE
     Indication: Pancreatic failure
     Route: 048

REACTIONS (12)
  - Nephrolithiasis [Recovering/Resolving]
  - Nausea [Not Recovered/Not Resolved]
  - Renal disorder [Unknown]
  - Diarrhoea [Not Recovered/Not Resolved]
  - Hepatic steatosis [Not Recovered/Not Resolved]
  - Blood glucose abnormal [Not Recovered/Not Resolved]
  - Pancreatic disorder [Not Recovered/Not Resolved]
  - Constipation [Not Recovered/Not Resolved]
  - Hepatic cirrhosis [Not Recovered/Not Resolved]
  - Renal atrophy [Not Recovered/Not Resolved]
  - Gastrooesophageal reflux disease [Recovered/Resolved]
  - Product administration error [Not Recovered/Not Resolved]

NARRATIVE: CASE EVENT DATE: 20200101
